FAERS Safety Report 5816020-6 (Version None)
Quarter: 2008Q3

REPORT INFORMATION
  Report Type: 
  Country: None (occurrence: None)
  Receive Date: 20080721
  Receipt Date: 20080711
  Transmission Date: 20090109
  Serious: Yes (Other)
  Sender: FDA-Public Use
  Company Number: PHHY2008FI13378

PATIENT
  Sex: Male

DRUGS (4)
  1. CLOZAPINE [Suspect]
     Indication: PSYCHOTIC DISORDER
     Dosage: 350 MG PER DAY
     Route: 065
  2. CLOZAPINE [Suspect]
     Dosage: 200 MG
  3. TRUXAL [Concomitant]
  4. SEROQUEL [Concomitant]
     Indication: PSYCHOTIC DISORDER

REACTIONS (10)
  - ASPERMIA [None]
  - CHEST PAIN [None]
  - DIARRHOEA [None]
  - LACRIMATION INCREASED [None]
  - MUSCLE CONTRACTIONS INVOLUNTARY [None]
  - RHINORRHOEA [None]
  - SALIVARY HYPERSECRETION [None]
  - SEMINAL VESICULAR DISORDER [None]
  - SLEEP DISORDER [None]
  - WEIGHT INCREASED [None]
